FAERS Safety Report 19304858 (Version 1)
Quarter: 2021Q2

REPORT INFORMATION
  Report Type: Report from Study
  Country: None (occurrence: US)
  Receive Date: 20210526
  Receipt Date: 20210526
  Transmission Date: 20210717
  Serious: Yes (Other)
  Sender: FDA-Public Use
  Company Number: US-ABBVIE-21K-163-3765885-00

PATIENT
  Sex: Male

DRUGS (1)
  1. HUMIRA [Suspect]
     Active Substance: ADALIMUMAB
     Indication: PSORIATIC ARTHROPATHY
     Dosage: CF PEN
     Route: 058
     Dates: start: 20201115

REACTIONS (3)
  - Tendon rupture [Unknown]
  - Musculoskeletal stiffness [Unknown]
  - Injection site bruising [Unknown]
